FAERS Safety Report 22200022 (Version 1)
Quarter: 2023Q2

REPORT INFORMATION
  Report Type: Spontaneous
  Country: US (occurrence: US)
  Receive Date: 20230412
  Receipt Date: 20230412
  Transmission Date: 20230722
  Serious: No
  Sender: FDA-Public Use
  Company Number: US-SANOFI-01564275

PATIENT

DRUGS (1)
  1. ALLEGRA HIVES 24HR [Suspect]
     Active Substance: FEXOFENADINE HYDROCHLORIDE
     Dosage: 1 DF

REACTIONS (1)
  - Therapeutic response shortened [Unknown]
